FAERS Safety Report 16244642 (Version 1)
Quarter: 2019Q2

REPORT INFORMATION
  Report Type: Other
  Country: US (occurrence: IN)
  Receive Date: 20190426
  Receipt Date: 20190426
  Transmission Date: 20190711
  Serious: Yes (Life-Threatening, Hospitalization, Congenital Anomaly)
  Sender: FDA-Public Use
  Company Number: IN-BRECKENRIDGE PHARMACEUTICAL, INC.-2066281

PATIENT
  Age: 25 Year
  Sex: Female

DRUGS (1)
  1. IMATINIB. [Suspect]
     Active Substance: IMATINIB MESYLATE
     Indication: CHRONIC MYELOID LEUKAEMIA

REACTIONS (4)
  - Hyperemesis gravidarum [None]
  - Abortion induced [None]
  - Eclampsia [None]
  - Placental infarction [None]
